FAERS Safety Report 25280443 (Version 1)
Quarter: 2025Q2

REPORT INFORMATION
  Report Type: Spontaneous
  Country: FR (occurrence: FR)
  Receive Date: 20250508
  Receipt Date: 20250508
  Transmission Date: 20250717
  Serious: Yes (Other)
  Sender: BRISTOL-MYERS SQUIBB COMPANY
  Company Number: None

PATIENT
  Age: 62 Year
  Sex: Female
  Weight: 63.5 kg

DRUGS (3)
  1. OPDIVO [Suspect]
     Active Substance: NIVOLUMAB
     Indication: Metastatic malignant melanoma
     Dosage: 1MG/KG EVERY 3 WEEKS, THEN 480MG EVERY 4 WEEKS FROM 12/10/2021
     Route: 042
     Dates: start: 20210720, end: 20220811
  2. OPDIVO [Suspect]
     Active Substance: NIVOLUMAB
     Route: 042
     Dates: start: 20211012
  3. YERVOY [Suspect]
     Active Substance: IPILIMUMAB
     Indication: Metastatic malignant melanoma
     Route: 042
     Dates: start: 20210720, end: 20210921

REACTIONS (1)
  - Periodontitis [Recovered/Resolved with Sequelae]

NARRATIVE: CASE EVENT DATE: 20230101
